FAERS Safety Report 8965847 (Version 1)
Quarter: 2012Q4

REPORT INFORMATION
  Report Type: 
  Country: CH (occurrence: CH)
  Receive Date: 20121217
  Receipt Date: 20121217
  Transmission Date: 20130627
  Serious: Yes (Hospitalization)
  Sender: FDA-Public Use
  Company Number: CH-GE HEALTHCARE MEDICAL DIAGNOSTICS-OMPQ-NO-1212S-1326

PATIENT
  Age: 13 Year
  Sex: Male
  Weight: 36 kg

DRUGS (14)
  1. ACCUPAQUE [Suspect]
     Indication: PRODUCT USED FOR UNKNOWN INDICATION
     Dosage: dose not reported
     Route: 042
     Dates: start: 20120611, end: 20120611
  2. ACCUPAQUE [Suspect]
     Indication: DIAGNOSTIC PROCEDURE
  3. GARAMICIN [Suspect]
     Indication: PRODUCT USED FOR UNKNOWN INDICATION
     Route: 042
     Dates: start: 20120606, end: 20120620
  4. COLISTIN [Suspect]
     Indication: PRODUCT USED FOR UNKNOWN INDICATION
     Dosage: 1.5 x 10^6 IU
     Route: 042
     Dates: start: 20120606, end: 20120620
  5. VENTOLIN [Concomitant]
  6. PULMOZYME [Concomitant]
  7. COLISTIN [Concomitant]
  8. BRAMITOB [Concomitant]
  9. NASONEX [Concomitant]
  10. CREON [Concomitant]
  11. URSOFALK [Concomitant]
  12. OMEPRAZOL [Concomitant]
  13. INDERAL [Concomitant]
  14. ZITHROMAX [Concomitant]

REACTIONS (5)
  - Renal failure acute [Recovering/Resolving]
  - Proteinuria [Recovering/Resolving]
  - Renal tubular disorder [Recovering/Resolving]
  - Blood creatinine increased [Recovering/Resolving]
  - Fatigue [Recovering/Resolving]
